FAERS Safety Report 8497644 (Version 3)
Quarter: 2012Q4

REPORT INFORMATION
  Report Type: Report from Study
  Country: FR (occurrence: FR)
  Receive Date: 20120406
  Receipt Date: 20121008
  Transmission Date: 20130627
  Serious: Yes (Hospitalization)
  Sender: FDA-Public Use
  Company Number: FR-ROCHE-1053084

PATIENT
  Age: 62 Year
  Sex: Female

DRUGS (3)
  1. CELLCEPT [Suspect]
     Indication: TRANSPLANT REJECTION
     Route: 048
     Dates: start: 20110507
  2. EVEROLIMUS [Suspect]
     Indication: TRANSPLANT REJECTION
     Route: 048
     Dates: start: 20110512, end: 20120320
  3. PROGRAFT [Concomitant]
     Route: 065
     Dates: start: 20120320

REACTIONS (2)
  - Transplant rejection [Not Recovered/Not Resolved]
  - Hypercreatininaemia [Recovering/Resolving]
